FAERS Safety Report 16071504 (Version 1)
Quarter: 2019Q1

REPORT INFORMATION
  Report Type: Spontaneous
  Country: US (occurrence: US)
  Receive Date: 20190314
  Receipt Date: 20190314
  Transmission Date: 20190418
  Serious: No
  Sender: FDA-Public Use
  Company Number: US-TEVA-2019-US-1016875

PATIENT
  Sex: Female
  Weight: 113.5 kg

DRUGS (1)
  1. METHOTREXATE. [Suspect]
     Active Substance: METHOTREXATE
     Indication: RHEUMATOID ARTHRITIS
     Dosage: .0571 ML DAILY; FOR 6 OR 7 YEARS

REACTIONS (4)
  - Arthralgia [Unknown]
  - Weight decreased [Unknown]
  - Movement disorder [Unknown]
  - Drug effect variable [Unknown]
